FAERS Safety Report 14259916 (Version 2)
Quarter: 2018Q1

REPORT INFORMATION
  Report Type: Spontaneous
  Country: US (occurrence: US)
  Receive Date: 20171207
  Receipt Date: 20180305
  Transmission Date: 20180508
  Serious: No
  Sender: FDA-Public Use
  Company Number: US-VIFOR (INTERNATIONAL) INC.-VIT-2017-08024

PATIENT
  Sex: Female

DRUGS (7)
  1. METFORMIN HYDROCHLORIDE. [Concomitant]
     Active Substance: METFORMIN HYDROCHLORIDE
  2. VELTASSA [Suspect]
     Active Substance: PATIROMER
     Indication: HYPERKALAEMIA
     Route: 048
     Dates: start: 20170802
  3. COLECALCIFEROL [Concomitant]
     Active Substance: CHOLECALCIFEROL
  4. STOOL SOFTENER (DOCUSATE) [Concomitant]
     Active Substance: DOCUSATE
  5. VELTASSA [Suspect]
     Active Substance: PATIROMER
     Route: 065
  6. LAXATIVE [Concomitant]
     Active Substance: UNSPECIFIED INGREDIENT
  7. LANTUS [Concomitant]
     Active Substance: INSULIN GLARGINE

REACTIONS (13)
  - Asthenia [Not Recovered/Not Resolved]
  - Vomiting [Recovering/Resolving]
  - Dizziness [Recovering/Resolving]
  - Adverse reaction [Recovering/Resolving]
  - Gait disturbance [Recovering/Resolving]
  - Cystitis [Recovering/Resolving]
  - General physical health deterioration [Recovering/Resolving]
  - Constipation [Not Recovered/Not Resolved]
  - Peripheral swelling [Recovering/Resolving]
  - Unevaluable event [Recovering/Resolving]
  - Bedridden [Recovering/Resolving]
  - Diarrhoea [Recovering/Resolving]
  - Inappropriate schedule of drug administration [Unknown]
